FAERS Safety Report 4640983-8 (Version None)
Quarter: 2005Q2

REPORT INFORMATION
  Report Type: 
  Country: None (occurrence: None)
  Receive Date: 20050421
  Receipt Date: 20050405
  Transmission Date: 20051028
  Serious: Yes (Other)
  Sender: FDA-Public Use
  Company Number: GB-BOEHRINGER INGELHEIM PHARMACEUTICALS, INC.-2005-UK-00563UK

PATIENT
  Age: 57 Year
  Sex: Female
  Weight: 69 kg

DRUGS (8)
  1. ATROVENT [Suspect]
     Route: 055
     Dates: start: 20050306, end: 20050306
  2. OMEPRAZOLE [Concomitant]
     Route: 048
     Dates: start: 19950101
  3. LISINOPRIL [Concomitant]
     Indication: HYPERTENSION
     Route: 048
     Dates: start: 20050208
  4. CODEINE PHOSPHATE [Concomitant]
     Indication: DIARRHOEA
     Route: 048
     Dates: start: 20050204
  5. CALCICHEW D3 [Concomitant]
     Route: 048
     Dates: start: 20040203
  6. SERETIDE [Concomitant]
     Indication: ASTHMA
     Route: 055
     Dates: start: 20021205
  7. SERETIDE [Concomitant]
  8. AIROMIR [Concomitant]
     Dosage: 8 PUFFS DAILY
     Route: 055
     Dates: start: 20000104

REACTIONS (2)
  - CHEST DISCOMFORT [None]
  - WHEEZING [None]
